FAERS Safety Report 8233703-1 (Version None)
Quarter: 2012Q1

REPORT INFORMATION
  Report Type: 
  Country: None (occurrence: None)
  Receive Date: 20120326
  Receipt Date: 20120321
  Transmission Date: 20120608
  Serious: Yes (Death)
  Sender: FDA-Public Use
  Company Number: PHHY2012MX014377

PATIENT
  Sex: Female

DRUGS (3)
  1. EXELON [Suspect]
     Dosage: 9.5 MG/10 CM2 DAILY
     Route: 062
     Dates: start: 20120101
  2. EXELON [Suspect]
     Indication: DEMENTIA ALZHEIMER'S TYPE
     Dosage: 4.6 MG/5CM2
     Route: 062
     Dates: start: 20110901, end: 20120101
  3. BENARSA [Concomitant]
     Indication: BRAIN HYPOXIA
     Dosage: ONCE A DAY
     Dates: start: 20120201

REACTIONS (1)
  - MYOCARDIAL INFARCTION [None]
